FAERS Safety Report 9123690 (Version 1)
Quarter: 2013Q1

REPORT INFORMATION
  Report Type: Spontaneous
  Country: NZ (occurrence: NZ)
  Receive Date: 20130227
  Receipt Date: 20130227
  Transmission Date: 20140127
  Serious: Yes (Other)
  Sender: FDA-Public Use
  Company Number: NZ-PFIZER INC-2013068592

PATIENT
  Sex: Female

DRUGS (1)
  1. ZARATOR [Suspect]
     Dosage: 10 MG, UNK

REACTIONS (3)
  - Arthritis [Unknown]
  - Joint instability [Unknown]
  - Muscular weakness [Unknown]
